FAERS Safety Report 9740690 (Version 1)
Quarter: 2013Q4

REPORT INFORMATION
  Report Type: Spontaneous
  Country: US (occurrence: US)
  Receive Date: 20131209
  Receipt Date: 20131209
  Transmission Date: 20140711
  Serious: No
  Sender: FDA-Public Use
  Company Number: US-BIOGENIDEC-2013BI099283

PATIENT
  Age: 65 Year
  Sex: Female

DRUGS (11)
  1. TECFIDERA [Suspect]
     Indication: MULTIPLE SCLEROSIS
     Route: 048
     Dates: start: 20130924
  2. ACETAMINOPHEN [Concomitant]
  3. BACLOFEN [Concomitant]
  4. BISACODYL [Concomitant]
  5. CALCIUM 500/ VITAMIN D [Concomitant]
  6. DOCUSATE SODIUM [Concomitant]
  7. FLORAJEN ACIDOPHILUS [Concomitant]
  8. MILK OF MAGNESIA [Concomitant]
  9. OXYBUTYNIN CHLORIDE [Concomitant]
  10. OXYCONTIN [Concomitant]
  11. POLYSORBATE 60 [Concomitant]

REACTIONS (1)
  - Pain in extremity [Unknown]
